FAERS Safety Report 7229639-5 (Version None)
Quarter: 2011Q1

REPORT INFORMATION
  Report Type: 
  Country: None (occurrence: None)
  Receive Date: 20110117
  Receipt Date: 20110105
  Transmission Date: 20110831
  Serious: Yes (Other)
  Sender: FDA-Public Use
  Company Number: PHHY2010US87739

PATIENT
  Sex: Male

DRUGS (4)
  1. GLEEVEC [Suspect]
     Indication: CHRONIC MYELOID LEUKAEMIA
     Dosage: 400 MG, QD
     Route: 048
     Dates: start: 20080201, end: 20101221
  2. ASCORBIC ACID [Concomitant]
  3. CITRIC ACID [Concomitant]
     Dosage: UNK
     Route: 048
  4. VITAMIN D [Concomitant]

REACTIONS (4)
  - EXOPHTHALMOS [None]
  - ABNORMAL SENSATION IN EYE [None]
  - CONJUNCTIVAL HAEMORRHAGE [None]
  - OCULAR HYPERAEMIA [None]
